FAERS Safety Report 5206764-1 (Version None)
Quarter: 2007Q1

REPORT INFORMATION
  Report Type: 
  Country: None (occurrence: None)
  Receive Date: 20070109
  Receipt Date: 20070102
  Transmission Date: 20070707
  Serious: Yes (Life-Threatening, Hospitalization)
  Sender: FDA-Public Use
  Company Number: 2006-147371-NL

PATIENT
  Age: 30 Year
  Sex: Female

DRUGS (1)
  1. ETONOGESTREL [Suspect]
     Dosage: DF
     Dates: start: 20050209

REACTIONS (5)
  - ANAPHYLACTIC REACTION [None]
  - IMPLANT SITE IRRITATION [None]
  - INJECTION SITE REACTION [None]
  - LATEX ALLERGY [None]
  - PREGNANCY ON ORAL CONTRACEPTIVE [None]
